FAERS Safety Report 7459860-2 (Version None)
Quarter: 2011Q2

REPORT INFORMATION
  Report Type: 
  Country: None (occurrence: None)
  Receive Date: 20110427
  Receipt Date: 20110412
  Transmission Date: 20111010
  Serious: Yes (Hospitalization)
  Sender: FDA-Public Use
  Company Number: DSJ-2011-07331

PATIENT
  Age: 7 Decade
  Sex: Female

DRUGS (2)
  1. BENICAR HCT [Suspect]
     Indication: HYPERTENSION
     Dosage: 20/12.5 MG (1 IN 1 D), PER ORAL
     Route: 048
     Dates: start: 20050801, end: 20090101
  2. FLUOXETINE [Concomitant]

REACTIONS (3)
  - BLOOD PRESSURE INCREASED [None]
  - GASTROINTESTINAL NEOPLASM [None]
  - DRUG INEFFECTIVE [None]
